FAERS Safety Report 4683136-X (Version None)
Quarter: 2005Q2

REPORT INFORMATION
  Report Type: 
  Country: None (occurrence: None)
  Receive Date: 20050602
  Receipt Date: 20050307
  Transmission Date: 20051028
  Serious: No
  Sender: FDA-Public Use
  Company Number: USA050392620

PATIENT
  Sex: Female

DRUGS (12)
  1. CYMBALTA [Suspect]
     Dosage: 60 MG DAY
     Dates: start: 20050216, end: 20050303
  2. CALCIUM GLUCONATE [Concomitant]
  3. GLUCOSAMINE SULFATE [Concomitant]
  4. CENESTIN [Concomitant]
  5. NICOTINAMIDE W/PYRIDOXINE HYDROCHL./TYROSINE [Concomitant]
  6. IRON [Concomitant]
  7. DHEA [Concomitant]
  8. TAURINE [Concomitant]
  9. MULTI-VITAMIN [Concomitant]
  10. SYNTHROID [Concomitant]
  11. ZANAFLEX [Concomitant]
  12. CANDIDA ALBICANS SKIN TEST ANTIGEN [Concomitant]

REACTIONS (2)
  - DISCOMFORT [None]
  - VAGINAL MYCOSIS [None]
